FAERS Safety Report 9165357 (Version 1)
Quarter: 2013Q1

REPORT INFORMATION
  Report Type: Spontaneous
  Country: US (occurrence: US)
  Receive Date: 20130315
  Receipt Date: 20130315
  Transmission Date: 20140127
  Serious: Yes (Other)
  Sender: FDA-Public Use
  Company Number: US-JNJFOC-20130308882

PATIENT
  Sex: Female
  Weight: 71.67 kg

DRUGS (4)
  1. REMICADE [Suspect]
     Indication: PSORIATIC ARTHROPATHY
     Route: 042
     Dates: end: 2009
  2. REMICADE [Suspect]
     Indication: PSORIATIC ARTHROPATHY
     Route: 042
     Dates: start: 2009
  3. ADVAIR [Concomitant]
     Route: 055
  4. ALBUTEROL [Concomitant]
     Route: 055

REACTIONS (2)
  - Infusion related reaction [Recovered/Resolved]
  - Asthma [Recovered/Resolved]
